FAERS Safety Report 4445261-8 (Version None)
Quarter: 2004Q3

REPORT INFORMATION
  Report Type: 
  Country: None (occurrence: None)
  Receive Date: 20040730
  Receipt Date: 20040602
  Transmission Date: 20050211
  Serious: No
  Sender: FDA-Public Use
  Company Number: PHEH2004US06068

PATIENT
  Age: 42 Year
  Sex: Female

DRUGS (4)
  1. GLEEVEC [Suspect]
     Indication: CHRONIC MYELOID LEUKAEMIA
     Dosage: 400 MG, QD, ORAL
     Route: 048
     Dates: start: 20031001, end: 20040530
  2. ERYTHROMYCIN [Suspect]
     Indication: TOOTH EXTRACTION
     Dosage: 330 MG, ORAL
     Route: 048
     Dates: start: 20040526
  3. LORTAB [Concomitant]
  4. NOVOCAIN [Concomitant]

REACTIONS (2)
  - BURNING SENSATION [None]
  - TOOTH EXTRACTION [None]
